FAERS Safety Report 9982120 (Version 1)
Quarter: 2014Q1

REPORT INFORMATION
  Report Type: Report from Study
  Country: US (occurrence: US)
  Receive Date: 20140307
  Receipt Date: 20140307
  Transmission Date: 20141002
  Serious: No
  Sender: FDA-Public Use
  Company Number: US-ABBVIE-13P-163-1177422-00

PATIENT
  Age: 26 Year
  Sex: Female

DRUGS (7)
  1. HUMIRA [Suspect]
     Indication: CROHN^S DISEASE
     Dates: start: 20130913, end: 201311
  2. HUMIRA [Suspect]
     Dates: start: 20131202
  3. LIALDA [Concomitant]
     Indication: CROHN^S DISEASE
     Dosage: PILLS
  4. BUDESONIDE [Concomitant]
     Indication: CROHN^S DISEASE
     Dosage: PILLS
  5. MERCAPTOPURINE [Concomitant]
     Indication: CROHN^S DISEASE
     Dosage: 1/2 TABLET
  6. CALCIUM [Concomitant]
     Indication: MINERAL SUPPLEMENTATION
  7. MVI [Concomitant]
     Indication: VITAMIN SUPPLEMENTATION

REACTIONS (2)
  - Circumstance or information capable of leading to medication error [Recovering/Resolving]
  - Pneumonia [Recovering/Resolving]
